FAERS Safety Report 4999485-1 (Version None)
Quarter: 2006Q2

REPORT INFORMATION
  Report Type: 
  Country: None (occurrence: None)
  Receive Date: 20060509
  Receipt Date: 20060509
  Transmission Date: 20061013
  Serious: No
  Sender: FDA-Public Use
  Company Number: None

PATIENT
  Age: 45 Year
  Sex: Female
  Weight: 58.514 kg

DRUGS (8)
  1. METFORMIN [Suspect]
     Indication: DIABETES MELLITUS NON-INSULIN-DEPENDENT
     Dosage: 500 MG Q DAY PO
     Route: 048
     Dates: start: 20060201, end: 20060301
  2. DIOVAN [Concomitant]
  3. ESTRATEST [Concomitant]
  4. SEROQUEL [Concomitant]
  5. VALIUM [Concomitant]
  6. OXYCONTIN [Concomitant]
  7. LASIX [Concomitant]
  8. OMEPRAZOLE [Concomitant]

REACTIONS (1)
  - DIABETES MELLITUS INADEQUATE CONTROL [None]
